FAERS Safety Report 7549620-6 (Version None)
Quarter: 2011Q2

REPORT INFORMATION
  Report Type: 
  Country: None (occurrence: None)
  Receive Date: 20110615
  Receipt Date: 20110531
  Transmission Date: 20111010
  Serious: Yes (Other)
  Sender: FDA-Public Use
  Company Number: CA-JNJFOC-20110601258

PATIENT
  Sex: Female
  Weight: 61.3 kg

DRUGS (9)
  1. ACTONEL [Concomitant]
  2. FLAX SEED OIL [Concomitant]
  3. CELEBREX [Concomitant]
  4. VITAMIN B-12 [Concomitant]
     Route: 050
  5. REMICADE [Suspect]
     Indication: CROHN'S DISEASE
     Route: 042
     Dates: start: 20100420
  6. MUTIVITAMIN [Concomitant]
  7. PANTOPRAZOLE SODIUM [Concomitant]
  8. CALCIUM CARBONATE [Concomitant]
  9. VITAMIN D [Concomitant]

REACTIONS (3)
  - TOOTH FRACTURE [None]
  - TOOTH INFECTION [None]
  - TOOTH EXTRACTION [None]
